FAERS Safety Report 18696089 (Version 1)
Quarter: 2021Q1

REPORT INFORMATION
  Report Type: Spontaneous
  Country: DE (occurrence: DE)
  Receive Date: 20210104
  Receipt Date: 20210104
  Transmission Date: 20210419
  Serious: Yes (Other)
  Sender: FDA-Public Use
  Company Number: DE-MYLANLABS-2020M1106837

PATIENT
  Age: 60 Year

DRUGS (10)
  1. METHOTREXATE. [Suspect]
     Active Substance: METHOTREXATE
     Indication: LARGE GRANULAR LYMPHOCYTOSIS
     Dosage: UNK
     Route: 065
  2. CYCLOPHOSPHAMIDE. [Suspect]
     Active Substance: CYCLOPHOSPHAMIDE
     Indication: LARGE GRANULAR LYMPHOCYTOSIS
     Dosage: UNK
     Route: 065
  3. FLUDARABINE [Suspect]
     Active Substance: FLUDARABINE PHOSPHATE
     Indication: LARGE GRANULAR LYMPHOCYTOSIS
     Dosage: UNK
     Route: 065
  4. FLUDARABINE [Suspect]
     Active Substance: FLUDARABINE PHOSPHATE
     Dosage: RIC CONDITIONING PROTOCOL
     Route: 065
  5. DOXORUBICIN [Suspect]
     Active Substance: DOXORUBICIN
     Indication: LARGE GRANULAR LYMPHOCYTOSIS
     Dosage: CHOP CHEMOTHERAPY
     Route: 065
  6. MABCAMPATH [Suspect]
     Active Substance: ALEMTUZUMAB
     Indication: LARGE GRANULAR LYMPHOCYTOSIS
     Dosage: UNK
     Route: 065
  7. CYCLOPHOSPHAMIDE. [Suspect]
     Active Substance: CYCLOPHOSPHAMIDE
     Dosage: CHOP CHEMOTHERAPY
     Route: 065
  8. CYCLOPHOSPHAMIDE. [Suspect]
     Active Substance: CYCLOPHOSPHAMIDE
     Dosage: RIC CONDITIONING PROTOCOL
     Route: 065
  9. VINCRISTINE [Suspect]
     Active Substance: VINCRISTINE
     Indication: LARGE GRANULAR LYMPHOCYTOSIS
     Dosage: CHOP CHEMOTHERAPY
     Route: 065
  10. PREDNISONE. [Suspect]
     Active Substance: PREDNISONE
     Indication: LARGE GRANULAR LYMPHOCYTOSIS
     Dosage: CHOP CHEMOTHERAPY
     Route: 065

REACTIONS (2)
  - Therapy non-responder [Unknown]
  - Aspergillus infection [Unknown]
